FAERS Safety Report 4587056-0 (Version None)
Quarter: 2005Q1

REPORT INFORMATION
  Report Type: 
  Country: None (occurrence: None)
  Receive Date: 20050218
  Receipt Date: 20050210
  Transmission Date: 20050727
  Serious: Yes (Hospitalization)
  Sender: FDA-Public Use
  Company Number: PHHO2005JP02577

PATIENT
  Age: 84 Year
  Sex: Male
  Weight: 56 kg

DRUGS (4)
  1. PAMILCON [Concomitant]
     Indication: DIABETES MELLITUS
  2. ALLORINE [Concomitant]
     Indication: HYPERURICAEMIA
  3. BASEN [Concomitant]
     Indication: DIABETES MELLITUS
  4. DIOVAN [Suspect]
     Indication: HYPERTENSION
     Dosage: 40 MG, QD
     Route: 048
     Dates: start: 20030109, end: 20040315

REACTIONS (3)
  - SENSORY DISTURBANCE [None]
  - SUBDURAL HAEMATOMA [None]
  - SURGERY [None]
